FAERS Safety Report 8329969-X (Version None)
Quarter: 2012Q2

REPORT INFORMATION
  Report Type: 
  Country: None (occurrence: None)
  Receive Date: 20120502
  Receipt Date: 20120426
  Transmission Date: 20120825
  Serious: Yes (Hospitalization)
  Sender: FDA-Public Use
  Company Number: IT-BAYER-2012-041224

PATIENT
  Age: 39 Year
  Sex: Male

DRUGS (2)
  1. KARVEA [Concomitant]
     Indication: HYPERTENSION
     Dosage: UNK
     Route: 048
  2. ASPIRIN [Suspect]
     Indication: COUGH
     Dosage: DAILY DOSE 500 MG
     Route: 048
     Dates: start: 20120305, end: 20120401

REACTIONS (2)
  - HAEMOPTYSIS [None]
  - PULMONARY ALVEOLAR HAEMORRHAGE [None]
